FAERS Safety Report 23984952 (Version 2)
Quarter: 2024Q2

REPORT INFORMATION
  Report Type: Spontaneous
  Country: DE (occurrence: DE)
  Receive Date: 20240618
  Receipt Date: 20240625
  Transmission Date: 20240716
  Serious: Yes (Hospitalization, Other)
  Sender: FDA-Public Use
  Company Number: DE-MLMSERVICE-20240605-PI081102-00140-5

PATIENT
  Age: 7 Month
  Sex: Female

DRUGS (3)
  1. ETOPOSIDE [Suspect]
     Active Substance: ETOPOSIDE
     Indication: Acute myeloid leukaemia
     Dosage: RECEIVED THE FIRST CYCLE OF CHEMOTHERAPY (AIE) ACCORDING TO AML-BFM REGISTRY 2019 (D0)
  2. CYTARABINE [Suspect]
     Active Substance: CYTARABINE
     Indication: Acute myeloid leukaemia
     Dosage: RECEIVED THE FIRST CYCLE OF CHEMOTHERAPY (AIE) ACCORDING TO AML-BFM REGISTRY 2019 (D0)
  3. IDARUBICIN [Suspect]
     Active Substance: IDARUBICIN
     Indication: Acute myeloid leukaemia
     Dosage: RECEIVED THE FIRST CYCLE OF CHEMOTHERAPY (AIE) ACCORDING TO AML-BFM REGISTRY 2019 (D0)

REACTIONS (3)
  - Aspergillus infection [Recovering/Resolving]
  - Gastrointestinal fungal infection [Recovering/Resolving]
  - Pure white cell aplasia [Unknown]
